FAERS Safety Report 9390862 (Version 1)
Quarter: 2013Q3

REPORT INFORMATION
  Report Type: Spontaneous
  Country: US (occurrence: US)
  Receive Date: 20130709
  Receipt Date: 20130709
  Transmission Date: 20140515
  Serious: Yes (Other)
  Sender: FDA-Public Use
  Company Number: US-BAYER-2013-082627

PATIENT
  Sex: 0

DRUGS (2)
  1. AVELOX [Suspect]
  2. ALBUTEROL [Interacting]

REACTIONS (2)
  - Electrocardiogram QT prolonged [None]
  - Drug interaction [None]
